FAERS Safety Report 7594172-8 (Version None)
Quarter: 2011Q3

REPORT INFORMATION
  Report Type: 
  Country: None (occurrence: None)
  Receive Date: 20110706
  Receipt Date: 20110623
  Transmission Date: 20111222
  Serious: Yes (Other)
  Sender: FDA-Public Use
  Company Number: PHHY2011US23751

PATIENT
  Sex: Female
  Weight: 81.633 kg

DRUGS (4)
  1. NEXIUM [Concomitant]
  2. DIOVAN [Suspect]
     Dosage: 160 MG, QD
  3. DIOVAN HCT [Suspect]
     Route: 048
  4. THYROID THERAPY [Concomitant]

REACTIONS (2)
  - LOSS OF CONSCIOUSNESS [None]
  - DIZZINESS [None]
